FAERS Safety Report 4720204-8 (Version None)
Quarter: 2005Q3

REPORT INFORMATION
  Report Type: 
  Country: None (occurrence: None)
  Receive Date: 20050721
  Receipt Date: 20050718
  Transmission Date: 20060218
  Serious: Yes (Life-Threatening)
  Sender: FDA-Public Use
  Company Number: 2005CG01266

PATIENT
  Age: 66 Year
  Sex: Male

DRUGS (9)
  1. OMEPRAZOLE [Suspect]
     Dates: start: 20050607
  2. GLYPRESSINE [Suspect]
     Route: 042
     Dates: start: 20050610, end: 20050610
  3. VIALEBEX [Suspect]
     Route: 042
     Dates: start: 20050607, end: 20050607
  4. VIALEBEX [Suspect]
     Route: 042
     Dates: start: 20050608, end: 20050609
  5. VIALEBEX [Suspect]
     Route: 042
     Dates: start: 20050610, end: 20050612
  6. RED BLOOD CELLS [Concomitant]
     Dates: start: 20050607, end: 20050607
  7. RED BLOOD CELLS [Concomitant]
     Dates: start: 20050608, end: 20050608
  8. RED BLOOD CELLS [Concomitant]
     Dates: start: 20050610, end: 20050610
  9. RED BLOOD CELLS [Concomitant]
     Dates: start: 20050610, end: 20050610

REACTIONS (3)
  - HYPERTENSION [None]
  - PYREXIA [None]
  - RESPIRATORY DISTRESS [None]
